FAERS Safety Report 20091574 (Version 1)
Quarter: 2021Q4

REPORT INFORMATION
  Report Type: Spontaneous
  Country: CA (occurrence: CA)
  Receive Date: 20211119
  Receipt Date: 20211119
  Transmission Date: 20220303
  Serious: Yes (Hospitalization)
  Sender: FDA-Public Use
  Company Number: CA-TEVA-2021-CA-1978146

PATIENT
  Age: 69 Year
  Sex: Female
  Weight: 111 kg

DRUGS (19)
  1. CEFAZOLIN [Suspect]
     Active Substance: CEFAZOLIN
     Indication: Soft tissue infection
     Dosage: 3 GRAM DAILY;
     Route: 042
  2. CEFAZOLIN [Suspect]
     Active Substance: CEFAZOLIN
     Indication: Skin infection
  3. CEPHALEXIN [Suspect]
     Active Substance: CEPHALEXIN
     Indication: Soft tissue infection
     Dosage: 2000 MILLIGRAM DAILY;
     Route: 048
  4. CEPHALEXIN [Suspect]
     Active Substance: CEPHALEXIN
     Indication: Skin infection
  5. ACETAMINOPHEN [Concomitant]
     Active Substance: ACETAMINOPHEN
  6. AMLODIPINE [Concomitant]
     Active Substance: AMLODIPINE BESYLATE
  7. CALCIUM [Concomitant]
     Active Substance: CALCIUM
  8. CARBOPLATIN [Concomitant]
     Active Substance: CARBOPLATIN
  9. DEXAMETHASONE [Concomitant]
     Active Substance: DEXAMETHASONE
  10. DIPHENHYDRAMINE [Concomitant]
     Active Substance: DIPHENHYDRAMINE
  11. ENOXAPARIN [Concomitant]
     Active Substance: ENOXAPARIN
  12. FAMOTIDINE [Concomitant]
     Active Substance: FAMOTIDINE
  13. FOSAPREPITANT [Concomitant]
     Active Substance: FOSAPREPITANT
  14. HYDROCORTISONE [Concomitant]
     Active Substance: HYDROCORTISONE
  15. HYDROMORPHONE [Concomitant]
     Active Substance: HYDROMORPHONE
  16. ONDANSETRON [Concomitant]
     Active Substance: ONDANSETRON
  17. PACLITAXEL [Concomitant]
     Active Substance: PACLITAXEL
  18. ROSUVASTATIN [Concomitant]
     Active Substance: ROSUVASTATIN
  19. SENNA [Concomitant]
     Active Substance: SENNA LEAF\SENNOSIDES\SENNOSIDES A AND B

REACTIONS (2)
  - Diarrhoea [Recovering/Resolving]
  - Dyspnoea [Recovering/Resolving]
